FAERS Safety Report 10098973 (Version 1)
Quarter: 2014Q2

REPORT INFORMATION
  Report Type: Spontaneous
  Country: PT (occurrence: PT)
  Receive Date: 20140423
  Receipt Date: 20140423
  Transmission Date: 20141212
  Serious: Yes (Other)
  Sender: FDA-Public Use
  Company Number: PT-CELGENEUS-130-21880-14041712

PATIENT
  Age: 64 Year
  Sex: Female

DRUGS (7)
  1. REVLIMID [Suspect]
     Indication: PLASMA CELL MYELOMA
     Dosage: 25 MILLIGRAM
     Route: 048
     Dates: start: 201206
  2. REVLIMID [Suspect]
     Route: 048
     Dates: start: 201311
  3. DEXAMETHASONE [Concomitant]
     Indication: PLASMA CELL MYELOMA
     Dosage: 40 MILLIGRAM
     Route: 065
     Dates: start: 201206
  4. DEXAMETHASONE [Concomitant]
     Route: 065
  5. DEXAMETHASONE [Concomitant]
     Route: 065
     Dates: start: 201201
  6. DEXAMETHASONE [Concomitant]
     Dosage: 40 MILLIGRAM
     Route: 065
     Dates: start: 201210
  7. ARANESP [Concomitant]
     Indication: PRODUCT USED FOR UNKNOWN INDICATION
     Route: 065

REACTIONS (9)
  - Macular degeneration [Unknown]
  - Macular degeneration [Unknown]
  - Neutropenia [Unknown]
  - Neutropenia [Unknown]
  - Flushing [Recovered/Resolved]
  - Thermohypoaesthesia [Unknown]
  - Tremor [Unknown]
  - Oedema peripheral [Recovered/Resolved]
  - Respiratory tract infection [Unknown]
